FAERS Safety Report 7013053-1 (Version None)
Quarter: 2010Q3

REPORT INFORMATION
  Report Type: 
  Country: None (occurrence: None)
  Receive Date: 20100924
  Receipt Date: 20100914
  Transmission Date: 20110219
  Serious: Yes (Other)
  Sender: FDA-Public Use
  Company Number: GB-PFIZER INC-2010085104

PATIENT
  Age: 38 Year
  Sex: Female

DRUGS (1)
  1. CHAMPIX [Suspect]
     Indication: SMOKING CESSATION THERAPY
     Dosage: 1 MG, 2X/DAY
     Dates: start: 20100622, end: 20100803

REACTIONS (7)
  - ABDOMINAL PAIN UPPER [None]
  - DEPRESSION [None]
  - FLATULENCE [None]
  - HEADACHE [None]
  - NAUSEA [None]
  - PERSONALITY CHANGE [None]
  - SUICIDAL IDEATION [None]
